FAERS Safety Report 23995412 (Version 2)
Quarter: 2024Q3

REPORT INFORMATION
  Report Type: Spontaneous
  Country: US (occurrence: US)
  Receive Date: 20240620
  Receipt Date: 20240903
  Transmission Date: 20241017
  Serious: No
  Sender: SANOFI AVENTIS
  Company Number: US-SA-SAC20240617000085

PATIENT
  Age: 38 Year
  Sex: Male

DRUGS (1)
  1. DUPIXENT [Suspect]
     Active Substance: DUPILUMAB
     Indication: Asthma
     Dosage: 300 MG QOW
     Route: 058

REACTIONS (8)
  - Feeling jittery [Unknown]
  - Dyspnoea [Unknown]
  - Impaired quality of life [Unknown]
  - Sunburn [Unknown]
  - Condition aggravated [Unknown]
  - Injection site reaction [Unknown]
  - Dry eye [Unknown]
  - Therapeutic product effect decreased [Unknown]
